FAERS Safety Report 23944232 (Version 1)
Quarter: 2024Q2

REPORT INFORMATION
  Report Type: Spontaneous
  Country: US (occurrence: US)
  Receive Date: 20240606
  Receipt Date: 20240606
  Transmission Date: 20240715
  Serious: Yes (Hospitalization, Other)
  Sender: FDA-Public Use
  Company Number: US-LUPIN PHARMACEUTICALS INC.-2024-04587

PATIENT
  Sex: Male
  Weight: 25.4 kg

DRUGS (1)
  1. BREXPIPRAZOLE [Suspect]
     Active Substance: BREXPIPRAZOLE
     Indication: Product used for unknown indication
     Dosage: 2 MG
     Route: 048

REACTIONS (4)
  - Neurological symptom [Unknown]
  - Cardiac disorder [Unknown]
  - Toxicity to various agents [Unknown]
  - Accidental exposure to product [Unknown]
